FAERS Safety Report 5873865-4 (Version None)
Quarter: 2008Q3

REPORT INFORMATION
  Report Type: 
  Country: None (occurrence: None)
  Receive Date: 20080908
  Receipt Date: 20080828
  Transmission Date: 20090109
  Serious: Yes (Hospitalization, Disabling, Other)
  Sender: FDA-Public Use
  Company Number: US-BAYER-200828918NA

PATIENT
  Age: 59 Year
  Sex: Female
  Weight: 103 kg

DRUGS (8)
  1. CAMPATH [Suspect]
     Indication: CHRONIC LYMPHOCYTIC LEUKAEMIA
     Dosage: TOTAL DAILY DOSE: 3 MG
     Route: 042
     Dates: start: 20080312, end: 20080312
  2. CAMPATH [Suspect]
     Dosage: TOTAL DAILY DOSE: 30 MG
     Route: 042
     Dates: start: 20080319, end: 20080407
  3. TYLENOL (CAPLET) [Concomitant]
     Indication: PREMEDICATION
  4. BENADRYL [Concomitant]
     Indication: PREMEDICATION
  5. DECADRON SRC [Concomitant]
     Indication: PREMEDICATION
  6. ZOFRAN [Concomitant]
     Indication: PREMEDICATION
  7. PROCRIT [Concomitant]
     Indication: ANAEMIA
     Dates: start: 20080428, end: 20080505
  8. NEUPOGEN [Concomitant]
     Indication: NEUTROPENIA
     Dates: start: 20080415, end: 20080425

REACTIONS (5)
  - APHAGIA [None]
  - COGNITIVE DISORDER [None]
  - DEAFNESS [None]
  - MULTIPLE SCLEROSIS [None]
  - MUSCULAR WEAKNESS [None]
